FAERS Safety Report 21346254 (Version 1)
Quarter: 2022Q3

REPORT INFORMATION
  Report Type: Spontaneous
  Country: US (occurrence: US)
  Receive Date: 20220917
  Receipt Date: 20220917
  Transmission Date: 20221027
  Serious: Yes (Other)
  Sender: FDA-Public Use
  Company Number: US-CELLTRION INC.-2022US014800

PATIENT

DRUGS (1)
  1. TRUXIMA [Suspect]
     Active Substance: RITUXIMAB-ABBS
     Indication: Eosinophilic granulomatosis with polyangiitis
     Dosage: (THERAPY PLANNED DATE: 06 SEP 2022)

REACTIONS (2)
  - Eosinophilic granulomatosis with polyangiitis [Unknown]
  - Off label use [Unknown]
